FAERS Safety Report 8180080-0 (Version None)
Quarter: 2012Q1

REPORT INFORMATION
  Report Type: 
  Country: None (occurrence: None)
  Receive Date: 20120302
  Receipt Date: 20120302
  Transmission Date: 20120608
  Serious: Yes (Other)
  Sender: FDA-Public Use
  Company Number: None

PATIENT
  Age: 50 Year
  Sex: Female
  Weight: 80.739 kg

DRUGS (1)
  1. CYMBALTA [Suspect]
     Indication: DEPRESSION
     Dosage: 30MG
     Route: 048

REACTIONS (8)
  - CHEST PAIN [None]
  - DRY MOUTH [None]
  - NIPPLE PAIN [None]
  - DYSARTHRIA [None]
  - IMPAIRED WORK ABILITY [None]
  - TONGUE BITING [None]
  - HEADACHE [None]
  - POLLAKIURIA [None]
